FAERS Safety Report 23623413 (Version 1)
Quarter: 2024Q1

REPORT INFORMATION
  Report Type: Spontaneous
  Country: CA (occurrence: CA)
  Receive Date: 20240312
  Receipt Date: 20240312
  Transmission Date: 20240410
  Serious: Yes (Death)
  Sender: FDA-Public Use
  Company Number: CA-TEVA-VS-3166061

PATIENT
  Sex: Female

DRUGS (12)
  1. METHOTREXATE [Suspect]
     Active Substance: METHOTREXATE
     Dosage: TIME INTERVAL: CYCLICAL: DOSAGE FORM: NOT SPECIFIED
     Route: 065
  2. VINCRISTINE SULFATE [Suspect]
     Active Substance: VINCRISTINE SULFATE
     Dosage: DOSAGE FORM: NOT SPECIFIED
     Route: 065
  3. LEUCOVORIN [Suspect]
     Active Substance: LEUCOVORIN\LEUCOVORIN CALCIUM
     Dosage: TIME INTERVAL: CYCLICAL: DOSAGE FORM: NOT SPECIFIED
     Route: 065
  4. FLUDARABINE PHOSPHATE [Suspect]
     Active Substance: FLUDARABINE PHOSPHATE
     Dosage: DOSAGE FORM: SOLUTION INTRAVENOUS
     Route: 065
  5. ETOPOSIDE [Suspect]
     Active Substance: ETOPOSIDE
     Dosage: TIME INTERVAL: CYCLICAL: DOSAGE FORM: NOT SPECIFIED
     Route: 065
  6. DOXORUBICIN [Suspect]
     Active Substance: DOXORUBICIN
     Dosage: DOSAGE FORM: NOT SPECIFIED
     Route: 065
  7. RITUXIMAB [Suspect]
     Active Substance: RITUXIMAB
     Route: 065
  8. IFOSFAMIDE [Suspect]
     Active Substance: IFOSFAMIDE
     Dosage: DOSAGE FORM: POWDER FOR SOLUTION INTRAVENOUS
     Route: 065
  9. IDARUBICIN [Suspect]
     Active Substance: IDARUBICIN
     Dosage: DOSAGE FORM: NOT SPECIFIED
     Route: 065
  10. DAUNORUBICIN HYDROCHLORIDE [Suspect]
     Active Substance: DAUNORUBICIN HYDROCHLORIDE
     Dosage: DOSAGE FORM: POWDER FOR?SOLUTION?INTRAVENOUS
     Route: 065
  11. CYTARABINE [Suspect]
     Active Substance: CYTARABINE
     Indication: Myelodysplastic syndrome
     Dosage: DOSAGE FORM: NOT SPECIFIED
     Route: 065
  12. CYCLOPHOSPHAMIDE [Suspect]
     Active Substance: CYCLOPHOSPHAMIDE
     Dosage: TIME INTERVAL: CYCLICAL: DOSAGE FORM: POWDER FOR?SOLUTION?INTRAVENOUS
     Route: 065

REACTIONS (9)
  - Acute myeloid leukaemia [Fatal]
  - Gene mutation [Fatal]
  - Leukoerythroblastosis [Fatal]
  - Myelodysplastic syndrome [Fatal]
  - Myeloid leukaemia [Fatal]
  - Pancytopenia [Fatal]
  - Second primary malignancy [Fatal]
  - Drug ineffective [Fatal]
  - Dysplasia [Fatal]
